FAERS Safety Report 7833915 (Version 3)
Quarter: 2013Q4

REPORT INFORMATION
  Report Type: Spontaneous
  Country: US (occurrence: US)
  Receive Date: 20110228
  Receipt Date: 20131125
  Transmission Date: 20140711
  Serious: Yes (Hospitalization, Other)
  Sender: FDA-Public Use
  Company Number: US-ROCHE-649885

PATIENT
  Age: 21 Year
  Sex: Male
  Weight: 74.8 kg

DRUGS (6)
  1. ACCUTANE [Suspect]
     Indication: ACNE CYSTIC
     Route: 048
     Dates: start: 20060206, end: 200608
  2. CODEINE [Concomitant]
     Indication: PAIN
  3. ACETAMINOPHEN [Concomitant]
     Dosage: DOSE AS NEEDED
     Route: 065
  4. PIROXICAM [Concomitant]
     Route: 048
  5. IBUPROFEN [Concomitant]
     Route: 048
  6. LORATADINE [Concomitant]
     Route: 048

REACTIONS (13)
  - Cellulitis [Recovered/Resolved]
  - Crohn^s disease [Unknown]
  - Colitis ulcerative [Unknown]
  - Inflammatory bowel disease [Unknown]
  - Depression [Unknown]
  - Stress [Unknown]
  - Haemorrhoids [Unknown]
  - Adjustment disorder with depressed mood [Unknown]
  - Mental disorder [Unknown]
  - Ligament sprain [Unknown]
  - Oropharyngeal pain [Unknown]
  - Blood cholesterol increased [Unknown]
  - Furuncle [Unknown]
